FAERS Safety Report 7817657-5 (Version None)
Quarter: 2011Q4

REPORT INFORMATION
  Report Type: 
  Country: None (occurrence: None)
  Receive Date: 20111017
  Receipt Date: 20111011
  Transmission Date: 20120403
  Serious: Yes (Life-Threatening, Hospitalization)
  Sender: FDA-Public Use
  Company Number: US-JNJFOC-20111005764

PATIENT
  Age: 35 Year
  Sex: Female

DRUGS (8)
  1. ANTIDEPRESSANT [Concomitant]
     Indication: PRODUCT USED FOR UNKNOWN INDICATION
     Route: 065
  2. ULTRAM [Suspect]
     Indication: PRODUCT USED FOR UNKNOWN INDICATION
     Route: 065
  3. METHADONE HCL [Suspect]
     Indication: PRODUCT USED FOR UNKNOWN INDICATION
     Route: 065
  4. ACETAMINOPHEN [Suspect]
     Route: 065
  5. OXYCODONE HCL [Suspect]
     Indication: PRODUCT USED FOR UNKNOWN INDICATION
     Route: 065
  6. ANTIBIOTIC [Concomitant]
     Route: 065
  7. ANTICONVULSANT [Suspect]
     Indication: PRODUCT USED FOR UNKNOWN INDICATION
     Route: 065
  8. ACETAMINOPHEN [Suspect]
     Indication: PRODUCT USED FOR UNKNOWN INDICATION
     Route: 065

REACTIONS (25)
  - UNRESPONSIVE TO STIMULI [None]
  - BLOOD GLUCOSE INCREASED [None]
  - ALANINE AMINOTRANSFERASE INCREASED [None]
  - BLOOD CREATINE DECREASED [None]
  - BLOOD UREA DECREASED [None]
  - BLOOD ALBUMIN DECREASED [None]
  - INTERNATIONAL NORMALISED RATIO DECREASED [None]
  - CARBON DIOXIDE DECREASED [None]
  - BLOOD CHLORIDE INCREASED [None]
  - HEADACHE [None]
  - ASPARTATE AMINOTRANSFERASE INCREASED [None]
  - BILIRUBIN CONJUGATED INCREASED [None]
  - HYPERTENSION [None]
  - TOXICITY TO VARIOUS AGENTS [None]
  - BLOOD POTASSIUM DECREASED [None]
  - BLOOD CREATINE INCREASED [None]
  - HYPOTENSION [None]
  - BLOOD CALCIUM DECREASED [None]
  - SUICIDE ATTEMPT [None]
  - MULTIPLE DRUG OVERDOSE [None]
  - CONVULSION [None]
  - BLOOD BILIRUBIN INCREASED [None]
  - BLOOD PHOSPHORUS DECREASED [None]
  - PROTEIN TOTAL DECREASED [None]
  - PROTHROMBIN LEVEL DECREASED [None]
